FAERS Safety Report 6675212-7 (Version None)
Quarter: 2010Q2

REPORT INFORMATION
  Report Type: 
  Country: None (occurrence: None)
  Receive Date: 20100409
  Receipt Date: 20100330
  Transmission Date: 20101027
  Serious: Yes (Other)
  Sender: FDA-Public Use
  Company Number: US-PFIZER INC-2010041806

PATIENT
  Sex: Female
  Weight: 127 kg

DRUGS (6)
  1. LIPITOR [Suspect]
     Indication: BLOOD CHOLESTEROL INCREASED
     Dosage: 10 MG, 1X/DAY
     Dates: start: 20080101
  2. METHOTREXATE SODIUM [Suspect]
     Indication: RHEUMATOID ARTHRITIS
     Dosage: FREQUENCY: ONCE WEEKLY,
     Dates: start: 20090101
  3. SYNTHROID [Concomitant]
  4. FOLIC ACID [Concomitant]
  5. MULTI-VITAMINS [Concomitant]
  6. CALCIUM WITH VITAMIN D [Concomitant]

REACTIONS (6)
  - DRUG DOSE OMISSION [None]
  - HYPOAESTHESIA ORAL [None]
  - ORAL HERPES [None]
  - PARAESTHESIA ORAL [None]
  - RED BLOOD CELL SEDIMENTATION RATE INCREASED [None]
  - RHEUMATOID ARTHRITIS [None]
